FAERS Safety Report 15716617 (Version 6)
Quarter: 2021Q2

REPORT INFORMATION
  Report Type: Spontaneous
  Country: FR (occurrence: FR)
  Receive Date: 20181213
  Receipt Date: 20210521
  Transmission Date: 20210716
  Serious: Yes (Hospitalization, Other)
  Sender: FDA-Public Use
  Company Number: FR-AUROBINDO-AUR-APL-2018-059728

PATIENT
  Age: 67 Year
  Sex: Female

DRUGS (17)
  1. DEXAMETHASONE. [Suspect]
     Active Substance: DEXAMETHASONE
     Indication: NON-HODGKIN^S LYMPHOMA STAGE IV
     Dosage: PART OF R?DHAO THERAPY
     Route: 065
  2. ETOPOSIDE. [Suspect]
     Active Substance: ETOPOSIDE
     Indication: NON-HODGKIN^S LYMPHOMA STAGE IV
     Dosage: 200 MILLIGRAM/SQ. METER, TWO TIMES A DAY
     Route: 065
  3. IMMUNOGLOBULIN [Concomitant]
     Indication: PRODUCT USED FOR UNKNOWN INDICATION
     Dosage: UNK
     Route: 042
  4. OXALIPLATIN. [Suspect]
     Active Substance: OXALIPLATIN
     Indication: NON-HODGKIN^S LYMPHOMA STAGE IV
     Dosage: 130 MILLIGRAM/SQ. METER, PART OF R?DHAO THERAPY
     Route: 065
  5. BENDAMUSTINE HYDROCHLORIDE. [Suspect]
     Active Substance: BENDAMUSTINE HYDROCHLORIDE
     Indication: NON-HODGKIN^S LYMPHOMA STAGE IV
     Dosage: ON DAY ?7 AND DAY ?6 (BEAM THERAPY)
     Route: 042
  6. CYTARABINE. [Suspect]
     Active Substance: CYTARABINE
     Dosage: 2000 MILLIGRAM/SQ. METER, TWO TIMES A DAY,
     Route: 065
  7. ARACYTINE [Suspect]
     Active Substance: CYTARABINE
     Dosage: 1000 MILLIGRAM/SQ. METER, TWO TIMES A DAY
     Route: 065
  8. CYTARABINE. [Suspect]
     Active Substance: CYTARABINE
     Indication: NON-HODGKIN^S LYMPHOMA STAGE IV
     Dosage: 1000 MILLIGRAM/SQ. METER, TWO TIMES A DAY, FOR EVERY 12 HOURS
     Route: 065
  9. RITUXIMAB. [Suspect]
     Active Substance: RITUXIMAB
     Indication: NON-HODGKIN^S LYMPHOMA STAGE IV
     Dosage: PART OF R?DHAO THERAPY
     Route: 065
  10. GRANULOCYTE COLONY STIMULATING FACTOR [Concomitant]
     Active Substance: GRANULOCYTE COLONY-STIMULATING FACTOR NOS
     Indication: PREMEDICATION
     Dosage: UNK
     Route: 065
  11. MELPHALAN. [Suspect]
     Active Substance: MELPHALAN
     Indication: NON-HODGKIN^S LYMPHOMA STAGE IV
     Dosage: ON DAY ?2 (BEAM THERAPY)
     Route: 065
  12. ARACYTINE [Suspect]
     Active Substance: CYTARABINE
     Dosage: 2000 MILLIGRAM/SQ. METER, TWO TIMES A DAY
     Route: 065
  13. ETOPOSIDE. [Suspect]
     Active Substance: ETOPOSIDE
     Dosage: 100 MILLIGRAM/SQ. METER
     Route: 065
  14. BENDAMUSTINE HYDROCHLORIDE. [Suspect]
     Active Substance: BENDAMUSTINE HYDROCHLORIDE
     Indication: BONE MARROW CONDITIONING REGIMEN
  15. ARACYTINE [Suspect]
     Active Substance: CYTARABINE
     Indication: NON-HODGKIN^S LYMPHOMA STAGE IV
     Dosage: 2 MILLIGRAM/SQ. METER
     Route: 065
  16. MOZOBIL [Concomitant]
     Active Substance: PLERIXAFOR
     Indication: HAEMATOPOIETIC STEM CELL MOBILISATION
     Dosage: UNK
     Route: 065
  17. MOZOBIL [Concomitant]
     Active Substance: PLERIXAFOR
     Indication: PREMEDICATION

REACTIONS (11)
  - Toxicity to various agents [Recovered/Resolved]
  - Ascites [Recovered/Resolved]
  - Diarrhoea [Unknown]
  - Venoocclusive liver disease [Recovered/Resolved]
  - Acute kidney injury [Recovered/Resolved]
  - Off label use [Unknown]
  - Vomiting [Unknown]
  - Product use in unapproved indication [Unknown]
  - Aplasia [Recovered/Resolved]
  - Thrombocytopenia [Not Recovered/Not Resolved]
  - Dehydration [Unknown]
